FAERS Safety Report 18137790 (Version 2)
Quarter: 2021Q3

REPORT INFORMATION
  Report Type: Other
  Country: US (occurrence: US)
  Receive Date: 20200812
  Receipt Date: 20210813
  Transmission Date: 20211014
  Serious: No
  Sender: FDA-Public Use
  Company Number: US-ROCHE-2045843

PATIENT
  Age: 54 Year
  Sex: Female
  Weight: 127.5 kg

DRUGS (30)
  1. BUDESONIDE. [Concomitant]
     Active Substance: BUDESONIDE
     Dosage: 80? 4.5 MCG/ ACUTATION INHALER
     Route: 055
  2. NEURONTIN [Concomitant]
     Active Substance: GABAPENTIN
     Route: 048
  3. ROBAXIN [Concomitant]
     Active Substance: METHOCARBAMOL
     Route: 048
  4. CELLCEPT [Suspect]
     Active Substance: MYCOPHENOLATE MOFETIL\MYCOPHENOLATE MOFETIL HYDROCHLORIDE
     Indication: SYSTEMIC LUPUS ERYTHEMATOSUS
     Route: 048
  5. NEURONTIN [Concomitant]
     Active Substance: GABAPENTIN
     Route: 048
  6. CORTAID [Concomitant]
     Active Substance: HYDROCORTISONE
     Indication: RASH
     Route: 061
  7. NORVASC [Concomitant]
     Active Substance: AMLODIPINE BESYLATE
     Route: 048
  8. FORMOTEROL [Concomitant]
     Active Substance: FORMOTEROL
  9. PLAVIX [Concomitant]
     Active Substance: CLOPIDOGREL BISULFATE
     Route: 048
  10. CYMBALTA [Concomitant]
     Active Substance: DULOXETINE HYDROCHLORIDE
     Dosage: TAKE WITH DULOXETINE 60 MG TOTAL 90 MG DAILY
     Route: 048
  11. CYMBALTA [Concomitant]
     Active Substance: DULOXETINE HYDROCHLORIDE
     Dosage: TAKE WITH DULOXETINE 60 MG TOTAL 90 MG DAILY
     Route: 048
  12. SYNTHROID [Concomitant]
     Active Substance: LEVOTHYROXINE SODIUM
     Route: 048
  13. TURMERIC ROOT EXTRACT [Concomitant]
     Active Substance: TURMERIC
     Route: 048
  14. CALCIUM CITRATE [Concomitant]
     Active Substance: CALCIUM CITRATE
     Dosage: 315?200 MG UNIT PER TABLET
     Route: 048
  15. QUINAPRIL. [Concomitant]
     Active Substance: QUINAPRIL
     Route: 048
     Dates: start: 20140214
  16. METOPROLOL TARTRATE. [Concomitant]
     Active Substance: METOPROLOL TARTRATE
     Route: 048
  17. MYCOSTATIN [Concomitant]
     Active Substance: NYSTATIN
     Dosage: 100000 U/MG
     Route: 061
  18. CRESTOR [Concomitant]
     Active Substance: ROSUVASTATIN CALCIUM
     Route: 048
  19. ASPIRIN. [Concomitant]
     Active Substance: ASPIRIN
     Route: 048
  20. VITAMIN D3 [Concomitant]
     Active Substance: CHOLECALCIFEROL
     Route: 048
  21. ANTIVERT [Concomitant]
     Active Substance: MECLIZINE HYDROCHLORIDE
     Route: 048
  22. BELIMUMAB [Concomitant]
     Active Substance: BELIMUMAB
     Route: 058
  23. PRILOSEC [Concomitant]
     Active Substance: OMEPRAZOLE MAGNESIUM
     Route: 048
  24. CELLCEPT [Suspect]
     Active Substance: MYCOPHENOLATE MOFETIL\MYCOPHENOLATE MOFETIL HYDROCHLORIDE
     Route: 048
  25. COZAAR [Concomitant]
     Active Substance: LOSARTAN POTASSIUM
     Route: 048
  26. LIORESAL [Concomitant]
     Active Substance: BACLOFEN
     Route: 048
  27. RESTASIS [Concomitant]
     Active Substance: CYCLOSPORINE
     Dosage: INSTILL 1 DROP TO BOTH EYES EVERY 12 HOURS
     Route: 047
  28. HYDROXYCHLOROQUINE [Concomitant]
     Active Substance: HYDROXYCHLOROQUINE
     Route: 048
  29. MELATONIN [Concomitant]
     Active Substance: MELATONIN
     Route: 048
  30. CATAPRES [Concomitant]
     Active Substance: CLONIDINE HYDROCHLORIDE
     Route: 048

REACTIONS (17)
  - Ill-defined disorder [Unknown]
  - Off label use [Unknown]
  - Fall [Unknown]
  - Fatigue [Unknown]
  - Pulse abnormal [Unknown]
  - Foot fracture [Unknown]
  - Condition aggravated [Unknown]
  - Overweight [Unknown]
  - Blister [Unknown]
  - Oedema peripheral [Unknown]
  - Pain in extremity [Unknown]
  - Gait disturbance [Unknown]
  - Pain [Unknown]
  - Arthralgia [Unknown]
  - Musculoskeletal stiffness [Unknown]
  - Joint range of motion decreased [Unknown]
  - Blood pressure abnormal [Unknown]

NARRATIVE: CASE EVENT DATE: 201912
